FAERS Safety Report 4405867-9 (Version None)
Quarter: 2004Q3

REPORT INFORMATION
  Report Type: 
  Country: None (occurrence: None)
  Receive Date: 20040716
  Receipt Date: 20040705
  Transmission Date: 20050211
  Serious: Yes (Hospitalization)
  Sender: FDA-Public Use
  Company Number: GB-JNJFOC-20040700752

PATIENT
  Age: 36 Year
  Sex: Female

DRUGS (9)
  1. REMICADE [Suspect]
     Indication: PSORIATIC ARTHROPATHY
     Dosage: INTRAVENOUS
     Route: 042
     Dates: start: 20040108, end: 20040308
  2. METHOTREXATE [Concomitant]
  3. CELEBREX [Concomitant]
  4. DOTHIEPIN HYDROCHLORIDE [Concomitant]
  5. TRAMADOL HCL [Concomitant]
  6. ACETAMINOPHEN [Concomitant]
  7. OMEPRAZOLE [Concomitant]
  8. FOLIC ACID [Concomitant]
  9. TEMAZEPAM [Concomitant]

REACTIONS (2)
  - MYOCARDIAL ISCHAEMIA [None]
  - MYOCARDITIS [None]
